FAERS Safety Report 13383225 (Version 2)
Quarter: 2017Q2

REPORT INFORMATION
  Report Type: Spontaneous
  Country: JP (occurrence: JP)
  Receive Date: 20170329
  Receipt Date: 20170418
  Transmission Date: 20170830
  Serious: Yes (Other)
  Sender: FDA-Public Use
  Company Number: JP-PFIZER INC-2017130353

PATIENT
  Age: 43 Year
  Sex: Female

DRUGS (6)
  1. PATANOL [Concomitant]
     Active Substance: OLOPATADINE HYDROCHLORIDE
     Dosage: UNK
     Route: 047
  2. HUMERA [Concomitant]
     Active Substance: ADALIMUMAB
     Dosage: 40 MG, DAILY
     Route: 058
     Dates: start: 20170213
  3. TRANEXAMIC [Concomitant]
     Dosage: UNK
  4. PACLITAXEL 30MG/5ML HOSPIRA [Suspect]
     Active Substance: PACLITAXEL
     Dosage: UNK
     Route: 041
  5. FEXOFENADINE [Concomitant]
     Active Substance: FEXOFENADINE\FEXOFENADINE HYDROCHLORIDE
     Dosage: UNK
  6. HUMERA [Concomitant]
     Active Substance: ADALIMUMAB
     Dosage: 40 MG, 1X/2 WEEKS
     Dates: start: 20170220

REACTIONS (1)
  - Macular oedema [Recovering/Resolving]

NARRATIVE: CASE EVENT DATE: 20170226
